FAERS Safety Report 20904647 (Version 1)
Quarter: 2022Q2

REPORT INFORMATION
  Report Type: Spontaneous
  Country: IT (occurrence: IT)
  Receive Date: 20220602
  Receipt Date: 20220602
  Transmission Date: 20220720
  Serious: Yes (Death, Hospitalization)
  Sender: FDA-Public Use
  Company Number: IT-STRIDES ARCOLAB LIMITED-2022SP006318

PATIENT
  Age: 34 Year
  Sex: Female

DRUGS (6)
  1. PREDNISOLONE [Suspect]
     Active Substance: PREDNISOLONE
     Indication: Chronic graft versus host disease in lung
     Dosage: 20 MILLIGRAM, PER DAY
     Route: 065
     Dates: start: 202012
  2. MYCOPHENOLATE MOFETIL [Suspect]
     Active Substance: MYCOPHENOLATE MOFETIL
     Indication: Chronic graft versus host disease in lung
     Dosage: UNK
     Route: 065
  3. RAPAMYCIN [Suspect]
     Active Substance: SIROLIMUS
     Indication: Chronic graft versus host disease in lung
     Dosage: 0.5 MILLIGRAM, BID
     Route: 065
  4. ACYCLOVIR [Concomitant]
     Active Substance: ACYCLOVIR
     Indication: Prophylaxis
     Dosage: 400 MILLIGRAM, PER DAY
     Route: 065
  5. FLUCONAZOLE [Concomitant]
     Active Substance: FLUCONAZOLE
     Indication: Prophylaxis
     Dosage: 200 MILLIGRAM, PER DAY
     Route: 065
  6. COTRIMOXAZOLE [Concomitant]
     Active Substance: SULFAMETHOXAZOLE\TRIMETHOPRIM
     Indication: Prophylaxis
     Dosage: UNK (TRIMETHOPRIM 80 MG AND SULFAMETHOXAZOLE 400 MG THRICE WEEKLY)
     Route: 065

REACTIONS (4)
  - Mycobacterium abscessus infection [Fatal]
  - Cardiac failure [Fatal]
  - Cachexia [Fatal]
  - Off label use [Unknown]
